FAERS Safety Report 23930050 (Version 2)
Quarter: 2025Q2

REPORT INFORMATION
  Report Type: Report from Study
  Country: ES (occurrence: ES)
  Receive Date: 20240601
  Receipt Date: 20250517
  Transmission Date: 20250716
  Serious: Yes (Other)
  Sender: AUROBINDO
  Company Number: ES-009507513-2404ESP008553

PATIENT
  Age: 45 Year
  Sex: Male

DRUGS (4)
  1. EMTRICITABINE\TENOFOVIR [Suspect]
     Active Substance: EMTRICITABINE\TENOFOVIR
     Indication: Antiretroviral therapy
     Dosage: 200/300 MILLIGRAM, ONCE A DAY
     Route: 065
     Dates: start: 20170301
  2. EMTRICITABINE\TENOFOVIR [Suspect]
     Active Substance: EMTRICITABINE\TENOFOVIR
     Indication: HIV infection
  3. RALTEGRAVIR POTASSIUM [Interacting]
     Active Substance: RALTEGRAVIR POTASSIUM
     Indication: Antiretroviral therapy
     Dosage: 800 MILLIGRAM, ONCE A DAY
     Route: 048
  4. KAOLIN [Interacting]
     Active Substance: KAOLIN
     Indication: Product used for unknown indication
     Route: 065

REACTIONS (4)
  - Blood HIV RNA increased [Recovered/Resolved]
  - Therapeutic response decreased [Recovered/Resolved]
  - Drug level decreased [Unknown]
  - Drug interaction [Recovered/Resolved]

NARRATIVE: CASE EVENT DATE: 20180701
